FAERS Safety Report 19242368 (Version 1)
Quarter: 2021Q2

REPORT INFORMATION
  Report Type: Spontaneous
  Country: US (occurrence: US)
  Receive Date: 20210510
  Receipt Date: 20210510
  Transmission Date: 20210717
  Serious: Yes (Other)
  Sender: FDA-Public Use
  Company Number: US-ABBVIE-21K-163-3894763-00

PATIENT
  Age: 69 Year
  Sex: Female
  Weight: 84.44 kg

DRUGS (16)
  1. OLMESARTAN [Concomitant]
     Active Substance: OLMESARTAN
     Indication: HYPERTENSION
  2. ZOLPIDEM [Concomitant]
     Active Substance: ZOLPIDEM TARTRATE
     Indication: SLEEP DISORDER
  3. COVID?19 VACCINE NOS. [Concomitant]
     Active Substance: COVID-19 VACCINE NOS
     Indication: PRODUCT USED FOR UNKNOWN INDICATION
     Dosage: MODERNA
     Route: 030
     Dates: start: 20210128, end: 20210128
  4. DUOPA [Suspect]
     Active Substance: CARBIDOPA\LEVODOPA
  5. NEXIUM [Concomitant]
     Active Substance: ESOMEPRAZOLE MAGNESIUM
     Indication: GASTROOESOPHAGEAL REFLUX DISEASE
  6. MELATONIN [Concomitant]
     Active Substance: MELATONIN
     Indication: NIGHTMARE
  7. DUOPA [Suspect]
     Active Substance: CARBIDOPA\LEVODOPA
     Indication: PARKINSON^S DISEASE
     Route: 050
     Dates: start: 20171112
  8. LEXAPRO [Concomitant]
     Active Substance: ESCITALOPRAM OXALATE
     Indication: DEPRESSION
  9. PROBIOTICS [Concomitant]
     Active Substance: PROBIOTICS NOS
     Indication: COLITIS
  10. COVID?19 VACCINE NOS. [Concomitant]
     Active Substance: COVID-19 VACCINE NOS
     Dosage: MODERNA
     Route: 030
     Dates: start: 20210225, end: 20210225
  11. BIOTIN [Concomitant]
     Active Substance: BIOTIN
     Indication: HAIR GROWTH ABNORMAL
  12. FLONASE [Concomitant]
     Active Substance: FLUTICASONE PROPIONATE
     Indication: HYPERSENSITIVITY
  13. ROPINIROLE. [Concomitant]
     Active Substance: ROPINIROLE
     Indication: RESTLESS LEGS SYNDROME
  14. TOLTERODINE [Concomitant]
     Active Substance: TOLTERODINE
     Indication: HYPERTONIC BLADDER
  15. DONEPEZIL. [Concomitant]
     Active Substance: DONEPEZIL
     Indication: MEMORY IMPAIRMENT
  16. PROBIOTICS [Concomitant]
     Active Substance: PROBIOTICS NOS
     Indication: DIVERTICULITIS

REACTIONS (11)
  - Contusion [Recovering/Resolving]
  - Stoma site haemorrhage [Not Recovered/Not Resolved]
  - Stoma site discharge [Unknown]
  - Blister [Recovered/Resolved]
  - Skin irritation [Recovering/Resolving]
  - Fall [Recovered/Resolved]
  - Stoma site reaction [Not Recovered/Not Resolved]
  - Squamous cell carcinoma of skin [Recovered/Resolved]
  - Wound [Recovering/Resolving]
  - Stoma site irritation [Not Recovered/Not Resolved]
  - Haemarthrosis [Recovering/Resolving]

NARRATIVE: CASE EVENT DATE: 202103
